FAERS Safety Report 4582473-7 (Version None)
Quarter: 2005Q1

REPORT INFORMATION
  Report Type: 
  Country: None (occurrence: None)
  Receive Date: 20050211
  Receipt Date: 20050211
  Transmission Date: 20050727
  Serious: No
  Sender: FDA-Public Use
  Company Number: None

PATIENT
  Sex: Female

DRUGS (4)
  1. SAIZEN [Suspect]
     Indication: HORMONE LEVEL ABNORMAL
     Dosage: 1.25MG    3 X WEEK    SUBCUTANEO
     Route: 058
     Dates: start: 20050201, end: 20050205
  2. ESTRADIOL [Concomitant]
  3. PROGESTERONE [Concomitant]
  4. DHEA [Concomitant]

REACTIONS (7)
  - ABDOMINAL PAIN [None]
  - ASTHENIA [None]
  - DIZZINESS [None]
  - MUSCLE SPASMS [None]
  - NAUSEA [None]
  - VISION BLURRED [None]
  - VOMITING [None]
